FAERS Safety Report 8460921-X (Version None)
Quarter: 2012Q2

REPORT INFORMATION
  Report Type: 
  Country: None (occurrence: None)
  Receive Date: 20120625
  Receipt Date: 20120614
  Transmission Date: 20120825
  Serious: Yes (Hospitalization)
  Sender: FDA-Public Use
  Company Number: US-BIOGENIDEC-2012BI011867

PATIENT
  Age: 56 Year
  Sex: Female

DRUGS (4)
  1. AMPYRA [Concomitant]
     Indication: MULTIPLE SCLEROSIS
     Dates: start: 20100529
  2. COPAXONE [Concomitant]
     Indication: MULTIPLE SCLEROSIS
  3. AVONEX [Suspect]
     Indication: MULTIPLE SCLEROSIS
     Route: 030
     Dates: start: 20110529
  4. COUMADIN [Concomitant]
     Indication: COAGULATION FACTOR DEFICIENCY
     Route: 048

REACTIONS (4)
  - CHEST PAIN [None]
  - MULTIPLE SCLEROSIS RELAPSE [None]
  - MITRAL VALVE PROLAPSE [None]
  - LOSS OF CONSCIOUSNESS [None]
